FAERS Safety Report 7229094-5 (Version None)
Quarter: 2011Q1

REPORT INFORMATION
  Report Type: 
  Country: None (occurrence: None)
  Receive Date: 20110117
  Receipt Date: 20110111
  Transmission Date: 20110831
  Serious: Yes (Other)
  Sender: FDA-Public Use
  Company Number: NL-JNJFOC-20110102851

PATIENT
  Sex: Female

DRUGS (4)
  1. CONCERTA [Suspect]
     Indication: ILL-DEFINED DISORDER
     Route: 048
  2. CONCERTA [Suspect]
     Route: 048
  3. UNKNOWN MEDICATION [Concomitant]
     Route: 065
  4. CONCERTA [Suspect]
     Route: 048

REACTIONS (3)
  - WEIGHT DECREASED [None]
  - BLOOD URINE PRESENT [None]
  - HEART RATE INCREASED [None]
